FAERS Safety Report 4565272-1 (Version None)
Quarter: 2005Q1

REPORT INFORMATION
  Report Type: 
  Country: None (occurrence: None)
  Receive Date: 20050127
  Receipt Date: 20050127
  Transmission Date: 20050727
  Serious: Yes (Hospitalization)
  Sender: FDA-Public Use
  Company Number: None

PATIENT
  Age: 74 Year
  Sex: Female
  Weight: 54.9 kg

DRUGS (12)
  1. WARFARIN SODIUM [Suspect]
  2. CALCITONIN [Concomitant]
  3. NITROGLYCERIN [Concomitant]
  4. METOLAZONE [Concomitant]
  5. TRAZODONE [Concomitant]
  6. HYDROXYCHLOROQUINE SULFATE [Concomitant]
  7. FUROSEMIDE [Concomitant]
  8. HYDRALAZINE HCL [Concomitant]
  9. GABAPENTIN [Concomitant]
  10. CARVEDILOL [Concomitant]
  11. RANITIDINE [Concomitant]
  12. LISINOPRIL [Concomitant]

REACTIONS (1)
  - INTERNATIONAL NORMALISED RATIO INCREASED [None]
